FAERS Safety Report 13088916 (Version 1)
Quarter: 2017Q1

REPORT INFORMATION
  Report Type: Spontaneous
  Country: US (occurrence: US)
  Receive Date: 20170105
  Receipt Date: 20170105
  Transmission Date: 20170428
  Serious: Yes (Hospitalization)
  Sender: FDA-Public Use
  Company Number: None

PATIENT
  Age: 34 Year
  Sex: Female
  Weight: 94.8 kg

DRUGS (9)
  1. IODINE FROM POTASSIUM IODIDE [Concomitant]
  2. IODINE KELP [Concomitant]
  3. BIOTIN [Concomitant]
     Active Substance: BIOTIN
  4. POTASSIUM [Concomitant]
     Active Substance: POTASSIUM
  5. B12 METHYL [Concomitant]
  6. C [Concomitant]
  7. HYDROCODONE, ACETAMINOPHEN SUBSTITUTED FOR NORCO [Suspect]
     Active Substance: ACETAMINOPHEN\HYDROCODONE BITARTRATE
     Indication: TOOTHACHE
     Dosage: ?          QUANTITY:? ?QUSLGT-;?
     Route: 048
     Dates: start: 20161227, end: 20161228
  8. IBUPROFEN. [Concomitant]
     Active Substance: IBUPROFEN
  9. E [Concomitant]

REACTIONS (18)
  - Dyspnoea [None]
  - Dyskinesia [None]
  - Vomiting [None]
  - Asthenia [None]
  - Loss of consciousness [None]
  - Constipation [None]
  - Dizziness [None]
  - Yellow skin [None]
  - Chromaturia [None]
  - Disturbance in attention [None]
  - Balance disorder [None]
  - Chills [None]
  - Abdominal discomfort [None]
  - Dehydration [None]
  - Hyperhidrosis [None]
  - Tremor [None]
  - Wheezing [None]
  - Confusional state [None]

NARRATIVE: CASE EVENT DATE: 20161228
